FAERS Safety Report 7412197-X (Version None)
Quarter: 2011Q2

REPORT INFORMATION
  Report Type: 
  Country: None (occurrence: None)
  Receive Date: 20110413
  Receipt Date: 20110404
  Transmission Date: 20111010
  Serious: Yes (Other)
  Sender: FDA-Public Use
  Company Number: KR-ROCHE-661851

PATIENT
  Sex: Male
  Weight: 70.1 kg

DRUGS (15)
  1. MYCOPHENOLATE MOFETIL [Suspect]
     Route: 048
     Dates: start: 20100119, end: 20100122
  2. MYCOPHENOLATE MOFETIL [Suspect]
     Route: 048
     Dates: start: 20091014
  3. TELMISARTAN [Concomitant]
     Dates: start: 20090303
  4. CYCLOSPORINE [Suspect]
     Route: 048
     Dates: start: 20100119, end: 20100126
  5. BENZBROMARONE [Concomitant]
     Dates: start: 20090310
  6. MYCOPHENOLATE MOFETIL [Suspect]
     Route: 048
     Dates: start: 20100122
  7. PREDNISOLONE [Concomitant]
     Dates: start: 20100123, end: 20100126
  8. PREDNISOLONE [Concomitant]
     Dates: start: 20100210
  9. HEXAMIDINE [Concomitant]
     Dates: start: 20090110
  10. CYCLOSPORINE [Suspect]
     Route: 048
     Dates: start: 20100106
  11. CYCLOSPORINE [Suspect]
     Route: 048
     Dates: start: 20100127
  12. PREDNISOLONE [Concomitant]
     Dates: start: 20091014
  13. PREDNISOLONE [Concomitant]
     Dates: start: 20100119, end: 20100122
  14. PREDNISOLONE [Concomitant]
     Dates: start: 20100127, end: 20100209
  15. PETHIDINE [Concomitant]
     Dates: start: 20100106, end: 20100106

REACTIONS (3)
  - KIDNEY TRANSPLANT REJECTION [None]
  - BACTERAEMIA [None]
  - URINARY TRACT INFECTION [None]
